FAERS Safety Report 8642861 (Version 3)
Quarter: 2012Q4

REPORT INFORMATION
  Report Type: Spontaneous
  Country: US (occurrence: None)
  Receive Date: 20120620
  Receipt Date: 20120813
  Transmission Date: 20130627
  Serious: Yes (Death, Other)
  Sender: FDA-Public Use
  Company Number: TPA2012A03441

PATIENT
  Age: 85 Year
  Sex: Female
  Weight: 89.81 kg

DRUGS (3)
  1. ACTOS [Suspect]
     Indication: TYPE 2 DIABETES MELLITUS
     Dosage: 15 MG
     Dates: start: 20010321, end: 20080525
  2. GLARGENE/LANTUS (INSULIN GLARGINE) [Concomitant]
  3. EMPIRIN COMPOUND (ACETYLSALICYLIC ACID, CAFFEINE, PHENACETIN) [Concomitant]

REACTIONS (2)
  - Bladder cancer [None]
  - Haematuria [None]
